FAERS Safety Report 8170353-X (Version None)
Quarter: 2012Q1

REPORT INFORMATION
  Report Type: 
  Country: None (occurrence: None)
  Receive Date: 20120228
  Receipt Date: 20120223
  Transmission Date: 20120608
  Serious: Yes (Life-Threatening, Hospitalization)
  Sender: FDA-Public Use
  Company Number: NL-ASTELLAS-2012US002176

PATIENT
  Sex: Male
  Weight: 86 kg

DRUGS (2)
  1. ERLOTINIB HYDROCHLORIDE [Suspect]
     Indication: NON-SMALL CELL LUNG CANCER
     Dosage: 1500 MG, UID/QD
     Route: 048
     Dates: start: 20110919
  2. PEMETREXED [Suspect]
     Indication: NON-SMALL CELL LUNG CANCER
     Dosage: 1030 MG, Q3W
     Route: 042
     Dates: start: 20110913

REACTIONS (2)
  - MUCOSAL INFLAMMATION [None]
  - OVERDOSE [None]
